FAERS Safety Report 16910266 (Version 1)
Quarter: 2019Q4

REPORT INFORMATION
  Report Type: Spontaneous
  Country: US (occurrence: US)
  Receive Date: 20191011
  Receipt Date: 20191011
  Transmission Date: 20200122
  Serious: No
  Sender: FDA-Public Use
  Company Number: US-VIFOR (INTERNATIONAL) INC.-VIT-2019-08986

PATIENT
  Age: 81 Year
  Sex: Male

DRUGS (17)
  1. VELTASSA [Suspect]
     Active Substance: PATIROMER
     Indication: HYPERKALAEMIA
     Route: 048
     Dates: start: 20181017
  2. PREDNISONE. [Concomitant]
     Active Substance: PREDNISONE
  3. CLONIDINE. [Concomitant]
     Active Substance: CLONIDINE
  4. PROGRAF [Concomitant]
     Active Substance: TACROLIMUS
  5. FERROUS SULF [Concomitant]
     Active Substance: FERROUS SULFATE
  6. CALTRATE [Concomitant]
     Active Substance: CALCIUM CARBONATE
  7. COREG [Concomitant]
     Active Substance: CARVEDILOL
  8. IRBESARTAN. [Concomitant]
     Active Substance: IRBESARTAN
  9. MAGNESIUM OXIDE. [Concomitant]
     Active Substance: MAGNESIUM OXIDE
  10. HUMULIN N [Concomitant]
     Active Substance: INSULIN HUMAN
  11. TRADJENTA [Concomitant]
     Active Substance: LINAGLIPTIN
  12. LASIX [Concomitant]
     Active Substance: FUROSEMIDE
  13. ASPIRIN. [Concomitant]
     Active Substance: ASPIRIN
  14. FLOMAX [Concomitant]
     Active Substance: TAMSULOSIN HYDROCHLORIDE
  15. PRAVASTATIN. [Concomitant]
     Active Substance: PRAVASTATIN
  16. HYDROCHLOROTHIAZIDE. [Concomitant]
     Active Substance: HYDROCHLOROTHIAZIDE
  17. OMEPRAZOLE. [Concomitant]
     Active Substance: OMEPRAZOLE

REACTIONS (1)
  - Constipation [Recovering/Resolving]

NARRATIVE: CASE EVENT DATE: 201810
